FAERS Safety Report 12472494 (Version 2)
Quarter: 2018Q4

REPORT INFORMATION
  Report Type: Spontaneous
  Country: CA (occurrence: CA)
  Receive Date: 20160616
  Receipt Date: 20181225
  Transmission Date: 20190204
  Serious: Yes (Other)
  Sender: FDA-Public Use
  Company Number: CA-AMGEN-CANSP2016074247

PATIENT
  Age: 54 Year
  Sex: Female

DRUGS (2)
  1. GOLD [Concomitant]
     Active Substance: GOLD
     Dosage: UNK
  2. ENBREL [Suspect]
     Active Substance: ETANERCEPT
     Indication: RHEUMATOID ARTHRITIS
     Dosage: UNK
     Route: 058
     Dates: start: 2006, end: 2009

REACTIONS (8)
  - Rash [Unknown]
  - Abdominal discomfort [Unknown]
  - Rheumatoid arthritis [Unknown]
  - Fall [Unknown]
  - Influenza like illness [Unknown]
  - Upper limb fracture [Unknown]
  - Reflux gastritis [Unknown]
  - Weight increased [Unknown]

NARRATIVE: CASE EVENT DATE: 201603
